FAERS Safety Report 19929343 (Version 2)
Quarter: 2022Q1

REPORT INFORMATION
  Report Type: Report from Study
  Country: CA (occurrence: CA)
  Receive Date: 20211007
  Receipt Date: 20220326
  Transmission Date: 20220423
  Serious: Yes (Hospitalization)
  Sender: FDA-Public Use
  Company Number: CA-JNJFOC-20210960219

PATIENT
  Age: 42 Year
  Sex: Male

DRUGS (1)
  1. SIMPONI [Suspect]
     Active Substance: GOLIMUMAB
     Indication: Ankylosing spondylitis
     Route: 058

REACTIONS (2)
  - Clostridium difficile infection [Recovering/Resolving]
  - Post procedural haemorrhage [Not Recovered/Not Resolved]

NARRATIVE: CASE EVENT DATE: 20210928
